FAERS Safety Report 13087541 (Version 8)
Quarter: 2018Q2

REPORT INFORMATION
  Report Type: Report from Study
  Country: NL (occurrence: NL)
  Receive Date: 20170105
  Receipt Date: 20180530
  Transmission Date: 20180711
  Serious: Yes (Hospitalization)
  Sender: FDA-Public Use
  Company Number: NL-ROCHE-1872780

PATIENT
  Age: 44 Year
  Sex: Male
  Weight: 95.2 kg

DRUGS (34)
  1. OMEPRAZOL [Concomitant]
     Active Substance: OMEPRAZOLE
     Indication: PROPHYLAXIS
     Route: 048
     Dates: start: 20161026
  2. HALOPERIDOL. [Concomitant]
     Active Substance: HALOPERIDOL
     Indication: CONFUSIONAL STATE
     Route: 065
     Dates: start: 20170410, end: 20170410
  3. ATEZOLIZUMAB. [Suspect]
     Active Substance: ATEZOLIZUMAB
     Indication: NON-SMALL CELL LUNG CANCER STAGE IV
     Dosage: LAST DOSE PRIOR TO SAE WAS TAKEN ON 15/DEC/2016
     Route: 042
     Dates: start: 20161215
  4. ZOMETA [Concomitant]
     Active Substance: ZOLEDRONIC ACID
     Route: 065
     Dates: start: 20161215
  5. CISPLATIN. [Suspect]
     Active Substance: CISPLATIN
     Indication: NON-SMALL CELL LUNG CANCER STAGE IV
     Dosage: LAST DOSE (172 MG) PRIOR TO SAE WAS TAKEN ON 15/DEC/2016?WILL RECEIVE IV INFUSION OF 75 MG/M^2 CISPL
     Route: 042
     Dates: start: 20161215
  6. PARACETAMOL [Concomitant]
     Active Substance: ACETAMINOPHEN
     Indication: PAIN PROPHYLAXIS
     Route: 048
     Dates: start: 20161121
  7. KYTRIL [Concomitant]
     Active Substance: GRANISETRON HYDROCHLORIDE
     Route: 065
     Dates: start: 20170126, end: 20170126
  8. KYTRIL [Concomitant]
     Active Substance: GRANISETRON HYDROCHLORIDE
     Route: 065
     Dates: start: 20170216, end: 20170216
  9. NACL .9% [Concomitant]
     Route: 065
     Dates: start: 20161222, end: 20161230
  10. DEXAMETHASON [Concomitant]
     Active Substance: DEXAMETHASONE
     Route: 065
     Dates: start: 20161214, end: 20161218
  11. ETORICOXIB [Concomitant]
     Active Substance: ETORICOXIB
     Indication: PROPHYLAXIS
     Route: 065
     Dates: start: 20170113
  12. CAPHOSOL [Concomitant]
     Active Substance: CALCIUM CHLORIDE\SODIUM CHLORIDE\SODIUM PHOSPHATE, DIBASIC, ANHYDROUS\SODIUM PHOSPHATE, MONOBASIC, ANHYDROUS
     Indication: CANDIDA INFECTION
     Route: 065
     Dates: start: 20170410, end: 20170418
  13. OXYNORM [Concomitant]
     Active Substance: OXYCODONE HYDROCHLORIDE
     Indication: PAIN PROPHYLAXIS
     Route: 065
     Dates: start: 20161213
  14. OXYCODON [Concomitant]
     Active Substance: OXYCODONE
     Indication: PAIN PROPHYLAXIS
     Route: 065
     Dates: start: 20161213
  15. FOSAPREPITANT [Concomitant]
     Active Substance: FOSAPREPITANT
     Indication: PROPHYLAXIS OF NAUSEA AND VOMITING
     Route: 065
     Dates: start: 20161215, end: 20161217
  16. FOSAPREPITANT [Concomitant]
     Active Substance: FOSAPREPITANT
     Route: 065
     Dates: start: 20170126, end: 20170128
  17. FOSAPREPITANT [Concomitant]
     Active Substance: FOSAPREPITANT
     Route: 065
     Dates: start: 20170216, end: 20170218
  18. EPOETIN ALFA [Concomitant]
     Active Substance: ERYTHROPOIETIN
     Route: 065
     Dates: start: 20170105
  19. SERESTA [Concomitant]
     Active Substance: OXAZEPAM
     Indication: PROPHYLAXIS
     Route: 065
     Dates: start: 20170131
  20. METOCLOPRAMIDE. [Concomitant]
     Active Substance: METOCLOPRAMIDE
     Indication: PROPHYLAXIS OF NAUSEA AND VOMITING
     Route: 048
     Dates: start: 20161026
  21. VITAMIN B12 [Concomitant]
     Active Substance: CYANOCOBALAMIN
     Route: 065
     Dates: start: 20161130
  22. MOVICOLON [Concomitant]
     Active Substance: POLYETHYLENE GLYCOL 3350\POTASSIUM CHLORIDE\SODIUM BICARBONATE\SODIUM CHLORIDE
     Dosage: 1 SACHET
     Route: 048
     Dates: start: 20161222
  23. FOLIUMZUUR [Concomitant]
     Active Substance: FOLIC ACID
     Route: 048
     Dates: start: 20161130
  24. MORFINE [Concomitant]
     Active Substance: MORPHINE
     Indication: BACK PAIN
     Route: 065
     Dates: start: 20170105, end: 20170105
  25. NAPROXEN. [Concomitant]
     Active Substance: NAPROXEN
     Indication: PAIN PROPHYLAXIS
     Route: 065
     Dates: start: 20161121, end: 20161213
  26. TEMAZEPAM. [Concomitant]
     Active Substance: TEMAZEPAM
     Route: 048
     Dates: start: 20161223, end: 20161230
  27. PEMETREXED. [Suspect]
     Active Substance: PEMETREXED
     Indication: NON-SMALL CELL LUNG CANCER STAGE IV
     Dosage: LAST DOSE (1150 MG) PRIOR TO SAE WAS TAKEN ON 15/DEC/2016?WILL RECEIVE IV INFUSION OF 500 MG/M^2 PEM
     Route: 042
     Dates: start: 20161215
  28. FRAXIPARINE [Concomitant]
     Active Substance: NADROPARIN CALCIUM
     Indication: PROPHYLAXIS
     Dosage: DOSE:2850 IE
     Route: 065
     Dates: start: 20161222, end: 20161230
  29. OXYCONTIN [Concomitant]
     Active Substance: OXYCODONE HYDROCHLORIDE
     Route: 048
     Dates: start: 20161213
  30. KYTRIL [Concomitant]
     Active Substance: GRANISETRON HYDROCHLORIDE
     Indication: PROPHYLAXIS OF NAUSEA AND VOMITING
     Route: 065
     Dates: start: 20161215, end: 20161215
  31. TAVEGIL [Concomitant]
     Active Substance: CLEMASTINE FUMARATE
     Indication: BACK PAIN
     Route: 065
     Dates: start: 20170105, end: 20170105
  32. NORTRIPTYLINE [Concomitant]
     Active Substance: NORTRIPTYLINE
     Indication: PROPHYLAXIS
     Route: 065
     Dates: start: 20170113
  33. NYSTATINE [Concomitant]
     Indication: CANDIDA INFECTION
     Route: 065
     Dates: start: 20170411, end: 20170417
  34. FRAXIPARIN [Concomitant]
     Active Substance: NADROPARIN CALCIUM
     Route: 065
     Dates: start: 20161222, end: 20161230

REACTIONS (1)
  - Inflammation [Recovered/Resolved]

NARRATIVE: CASE EVENT DATE: 20161222
